FAERS Safety Report 23243416 (Version 1)
Quarter: 2023Q4

REPORT INFORMATION
  Report Type: Spontaneous
  Country: US (occurrence: US)
  Receive Date: 20231130
  Receipt Date: 20231130
  Transmission Date: 20240109
  Serious: No
  Sender: FDA-Public Use
  Company Number: US-drreddys-SPO/USA/23/0186890

PATIENT
  Age: 36 Year
  Sex: Female

DRUGS (1)
  1. SAPROPTERIN DIHYDROCHLORIDE [Suspect]
     Active Substance: SAPROPTERIN DIHYDROCHLORIDE
     Indication: Phenylketonuria
     Dosage: POWDER FOR SOLUTION 100 MG PACKET, TAKE OR DISSOLVE 16 TABLETS IN 4 TO 8 OZ OF WATER OR APPLE JUICE

REACTIONS (2)
  - Nausea [Unknown]
  - Product dose omission issue [Unknown]
